FAERS Safety Report 19144777 (Version 1)
Quarter: 2021Q2

REPORT INFORMATION
  Report Type: Spontaneous
  Country: US (occurrence: US)
  Receive Date: 20210415
  Receipt Date: 20210415
  Transmission Date: 20210717
  Serious: No
  Sender: FDA-Public Use
  Company Number: None

PATIENT
  Age: 56 Year
  Sex: Female

DRUGS (11)
  1. AVONEX [Suspect]
     Active Substance: INTERFERON BETA-1A
     Indication: MULTIPLE SCLEROSIS
     Dosage: ?          OTHER FREQUENCY:WEEKLY;?
     Route: 058
     Dates: start: 20180204
  2. SKELAXIN [Concomitant]
     Active Substance: METAXALONE
     Dates: start: 20200114
  3. VESICARE [Concomitant]
     Active Substance: SOLIFENACIN SUCCINATE
     Dates: start: 20200114
  4. NEUPRO [Concomitant]
     Active Substance: ROTIGOTINE
     Dates: start: 20200114
  5. SYNTHROID [Concomitant]
     Active Substance: LEVOTHYROXINE SODIUM
     Dates: start: 20200114
  6. EFFEXOR [Concomitant]
     Active Substance: VENLAFAXINE HYDROCHLORIDE
     Dates: start: 20200114
  7. RESTORIL [Concomitant]
     Active Substance: TEMAZEPAM
     Dates: start: 20200114
  8. ASPIRIN. [Concomitant]
     Active Substance: ASPIRIN
     Dates: start: 20200114
  9. NORVASC [Concomitant]
     Active Substance: AMLODIPINE BESYLATE
     Dates: start: 20200114
  10. ZANAFLEX [Concomitant]
     Active Substance: TIZANIDINE HYDROCHLORIDE
     Dates: start: 20200114
  11. CELEBREX [Concomitant]
     Active Substance: CELECOXIB
     Dates: start: 20200114

REACTIONS (1)
  - Knee arthroplasty [None]

NARRATIVE: CASE EVENT DATE: 20210415
